FAERS Safety Report 6986133-4 (Version None)
Quarter: 2010Q3

REPORT INFORMATION
  Report Type: 
  Country: None (occurrence: None)
  Receive Date: 20100910
  Receipt Date: 20100826
  Transmission Date: 20110219
  Serious: Yes (Other)
  Sender: FDA-Public Use
  Company Number: CIP08002482

PATIENT
  Age: 83 Year
  Sex: Male

DRUGS (9)
  1. BENET (RISEDRONATE SODIUM) TABLET, 2.5MG [Suspect]
     Indication: OSTEOPOROSIS PROPHYLAXIS
     Dosage: 2.5 MG DAILY, ORAL
     Route: 048
     Dates: start: 20070615, end: 20081111
  2. PREDNISOLONE [Concomitant]
  3. PREDNISOLONE [Concomitant]
  4. PREDNISOLONE [Concomitant]
  5. PREDNISOLONE [Concomitant]
  6. PREDNISOLONE [Concomitant]
  7. PREDNISOLONE [Concomitant]
  8. PREDNISOLONE [Concomitant]
  9. PREDNISOLONE [Concomitant]

REACTIONS (5)
  - CONDITION AGGRAVATED [None]
  - JAW DISORDER [None]
  - ORAL TORUS [None]
  - OSTEONECROSIS OF JAW [None]
  - STOMATITIS [None]
